FAERS Safety Report 18594004 (Version 1)
Quarter: 2020Q4

REPORT INFORMATION
  Report Type: Spontaneous
  Country: US (occurrence: US)
  Receive Date: 20201209
  Receipt Date: 20201209
  Transmission Date: 20210114
  Serious: No
  Sender: FDA-Public Use
  Company Number: US-TEVA-2020-US-1855533

PATIENT
  Sex: Female

DRUGS (19)
  1. AUSTEDO [Suspect]
     Active Substance: DEUTETRABENAZINE
     Indication: HUNTINGTON^S DISEASE
     Dosage: 12 MILLIGRAM DAILY;
     Route: 048
  2. TIZANIDINE HCL 2 MG CAPSULE [Concomitant]
  3. MULTI-VITAMINS [Concomitant]
  4. ETODOLAC. [Concomitant]
     Active Substance: ETODOLAC
  5. SULFASALAZINE. [Concomitant]
     Active Substance: SULFASALAZINE
  6. PREDNISONE. [Concomitant]
     Active Substance: PREDNISONE
  7. ASPIRIN. [Concomitant]
     Active Substance: ASPIRIN
  8. GEMFIBROZIL. [Concomitant]
     Active Substance: GEMFIBROZIL
  9. LYRICA [Concomitant]
     Active Substance: PREGABALIN
  10. LIDODERM 5 % ADH. PATCH [Concomitant]
  11. CALCIUM CITRATE + D [Concomitant]
     Active Substance: CALCIUM CITRATE\CHOLECALCIFEROL
  12. KLONOPIN [Concomitant]
     Active Substance: CLONAZEPAM
  13. VITAMIN D [Concomitant]
     Active Substance: VITAMIN D NOS
  14. BACLOFEN. [Concomitant]
     Active Substance: BACLOFEN
  15. ALLEGRA [Concomitant]
     Active Substance: FEXOFENADINE HYDROCHLORIDE
  16. FERROUS SULFATE. [Concomitant]
     Active Substance: FERROUS SULFATE
  17. NEXIUM [Concomitant]
     Active Substance: ESOMEPRAZOLE MAGNESIUM
  18. EFFEXOR XR [Concomitant]
     Active Substance: VENLAFAXINE HYDROCHLORIDE
  19. TRILEPTAL [Concomitant]
     Active Substance: OXCARBAZEPINE

REACTIONS (1)
  - Depression [Unknown]
